APPROVED DRUG PRODUCT: DEFERIPRONE
Active Ingredient: DEFERIPRONE
Strength: 1GM
Dosage Form/Route: TABLET;ORAL
Application: A213239 | Product #002 | TE Code: AB
Applicant: HIKMA PHARMACEUTICALS USA INC
Approved: Feb 8, 2022 | RLD: No | RS: Yes | Type: RX